FAERS Safety Report 4507600-9 (Version None)
Quarter: 2004Q4

REPORT INFORMATION
  Report Type: 
  Country: None (occurrence: None)
  Receive Date: 20041118
  Receipt Date: 20041028
  Transmission Date: 20050328
  Serious: Yes (Other)
  Sender: FDA-Public Use
  Company Number: B0349525A

PATIENT
  Age: 40 Year
  Sex: Male

DRUGS (11)
  1. ALBENZA [Suspect]
     Dosage: 400 MG / TWICE PER DAY
  2. EPIVIR [Suspect]
     Dosage: 150 MG / TWICE PER DAY
     Dates: start: 19960101
  3. RETROVIR [Suspect]
     Dosage: 300 MG / TWICE PER DAY
     Dates: start: 19960101
  4. RITONAVIR [Suspect]
     Dosage: 600 MG / TWICE PER DAY
     Dates: start: 19960101
  5. NELFINAVIR MESYLATE (FORMULATION UNKNOWN) [Suspect]
     Dosage: 1250 MG / TWICE PER DAY
  6. DARAPRIM [Suspect]
  7. SULFAMETHOXAZOLE [Suspect]
  8. STAVUDINE [Concomitant]
  9. ABACAVIR SULPHATE [Concomitant]
  10. LOPINAVIR + RITONAVIR [Concomitant]
  11. MEBENDAZOLE [Concomitant]

REACTIONS (9)
  - BONE MARROW DEPRESSION [None]
  - CALCINOSIS [None]
  - DRUG INTERACTION [None]
  - HEPATIC ECHINOCOCCIASIS [None]
  - HEPATIC NEOPLASM [None]
  - PANCYTOPENIA [None]
  - PAROTID GLAND ENLARGEMENT [None]
  - PLEURAL FIBROSIS [None]
  - PNEUMONIA STREPTOCOCCAL [None]
